FAERS Safety Report 7429444-0 (Version None)
Quarter: 2011Q2

REPORT INFORMATION
  Report Type: 
  Country: None (occurrence: None)
  Receive Date: 20110414
  Receipt Date: 20110405
  Transmission Date: 20111010
  Serious: Yes (Hospitalization)
  Sender: FDA-Public Use
  Company Number: UTC-006144

PATIENT
  Age: 55 Year
  Sex: Female
  Weight: 68.2 kg

DRUGS (3)
  1. LETAIRIS [Concomitant]
  2. DIURETICS (DIURETICS) [Concomitant]
  3. TYVASO [Suspect]
     Indication: COR PULMONALE CHRONIC
     Dosage: 288 MCG (72 MCG, 4 IN 1 D), INHALATION
     Route: 055
     Dates: start: 20110223

REACTIONS (4)
  - PALPITATIONS [None]
  - HYPOTENSION [None]
  - DYSPNOEA [None]
  - DIZZINESS [None]
